FAERS Safety Report 23385782 (Version 3)
Quarter: 2024Q2

REPORT INFORMATION
  Report Type: Report from Study
  Country: US (occurrence: US)
  Receive Date: 20240110
  Receipt Date: 20240424
  Transmission Date: 20240716
  Serious: No
  Sender: FDA-Public Use
  Company Number: US-AstraZeneca-CH-00540096A

PATIENT
  Age: 53 Year
  Sex: Female

DRUGS (1)
  1. STRENSIQ [Suspect]
     Active Substance: ASFOTASE ALFA
     Indication: Hypophosphatasia
     Dosage: 69 MILLIGRAM, SIX TIMES/WEEK
     Route: 058
     Dates: start: 20240105

REACTIONS (5)
  - Injection site discomfort [Unknown]
  - Injection site pain [Recovering/Resolving]
  - Injection site urticaria [Unknown]
  - Injection site bruising [Unknown]
  - Injection site discolouration [Unknown]

NARRATIVE: CASE EVENT DATE: 20240105
